FAERS Safety Report 9088434 (Version 1)
Quarter: 2013Q1

REPORT INFORMATION
  Report Type: Spontaneous
  Country: ZA (occurrence: ZA)
  Receive Date: 20130201
  Receipt Date: 20130201
  Transmission Date: 20140127
  Serious: Yes (Life-Threatening)
  Sender: FDA-Public Use
  Company Number: ZA-B.I. PHARMACEUTICALS,INC./RIDGEFIELD-2013-AP-00043ZA

PATIENT
  Sex: Male

DRUGS (4)
  1. PRADAXA [Suspect]
     Indication: ATRIAL FIBRILLATION
     Dosage: 300 MG
     Route: 048
  2. SOTAHEXAL [Concomitant]
     Dosage: 320 MG
  3. SLOW K [Concomitant]
     Indication: HYPOKALAEMIA
  4. ASPIRIN [Concomitant]
     Dosage: 100 MG

REACTIONS (1)
  - Ischaemic stroke [Recovered/Resolved with Sequelae]
